FAERS Safety Report 11205961 (Version 1)
Quarter: 2015Q2

REPORT INFORMATION
  Report Type: Spontaneous
  Country: US (occurrence: US)
  Receive Date: 20150622
  Receipt Date: 20150622
  Transmission Date: 20150821
  Serious: Yes (Congenital Anomaly, Other)
  Sender: FDA-Public Use
  Company Number: US-APOTEX-2015AP009999

PATIENT

DRUGS (1)
  1. PAXIL [Suspect]
     Active Substance: PAROXETINE HYDROCHLORIDE
     Indication: PRODUCT USED FOR UNKNOWN INDICATION
     Route: 064

REACTIONS (12)
  - Patent ductus arteriosus [Unknown]
  - Spina bifida [Unknown]
  - Attention deficit/hyperactivity disorder [Unknown]
  - Incontinence [Unknown]
  - Multiple congenital abnormalities [Unknown]
  - Failure to thrive [Unknown]
  - Talipes [Unknown]
  - Autism spectrum disorder [Unknown]
  - Eustachian tube dysfunction [Unknown]
  - Scoliosis [Unknown]
  - Cleft palate [Unknown]
  - Foetal exposure during pregnancy [Unknown]
